FAERS Safety Report 4537538-2 (Version None)
Quarter: 2004Q4

REPORT INFORMATION
  Report Type: 
  Country: None (occurrence: None)
  Receive Date: 20041216
  Receipt Date: 20040116
  Transmission Date: 20050328
  Serious: Yes (Other)
  Sender: FDA-Public Use
  Company Number: HQWYE427516JAN04

PATIENT
  Sex: Female

DRUGS (6)
  1. EFFEXOR XR [Suspect]
     Dosage: ORAL
     Route: 048
  2. EFFEXOR XR [Suspect]
     Dosage: ORAL
     Route: 048
  3. EFFEXOR XR [Suspect]
     Dosage: 225 MG 1X PER 1 DAY, ORAL
     Route: 048
  4. EFFEXOR XR [Suspect]
     Dosage: 375 MG 1X PER 1 DAY, ORAL
     Route: 048
  5. EFFEXOR XR [Suspect]
     Dosage: ORAL
     Route: 048
  6. EFFEXOR XR [Suspect]
     Dosage: 150 MG 1X PER 1 DAY, ORAL
     Route: 048

REACTIONS (1)
  - HYPERTENSION [None]
